FAERS Safety Report 4273862-9 (Version None)
Quarter: 2004Q1

REPORT INFORMATION
  Report Type: 
  Country: None (occurrence: None)
  Receive Date: 20040115
  Receipt Date: 20040107
  Transmission Date: 20041129
  Serious: Yes (Other)
  Sender: FDA-Public Use
  Company Number: K200400017

PATIENT
  Age: 60 Year
  Sex: Female
  Weight: 72.6 kg

DRUGS (4)
  1. LEVOXYL [Suspect]
     Indication: HYPOTHYROIDISM
     Dosage: 75 MCG, QD, ORAL
     Route: 048
     Dates: start: 19950101, end: 20000101
  2. SUDAFEC (PSEUDOEPHEDRINE HYDROCHLORIDE) [Concomitant]
  3. ESTRATEST [Concomitant]
  4. MENEST (ESTROGEN) TABLETS, 2.5  MG [Concomitant]

REACTIONS (2)
  - FLUID RETENTION [None]
  - SALIVARY HYPERSECRETION [None]
